FAERS Safety Report 6334809-4 (Version None)
Quarter: 2009Q3

REPORT INFORMATION
  Report Type: 
  Country: None (occurrence: None)
  Receive Date: 20090826
  Receipt Date: 20090813
  Transmission Date: 20100115
  Serious: Yes (Hospitalization)
  Sender: FDA-Public Use
  Company Number: 230508K09BRA

PATIENT
  Age: 48 Year
  Sex: Female

DRUGS (9)
  1. REBIF [Suspect]
     Indication: RELAPSING-REMITTING MULTIPLE SCLEROSIS
     Dosage: 44 MCG, 3 IN 1 WEEKS
     Dates: start: 20080615
  2. OMEPRAZOLE [Concomitant]
  3. CORTICORTEN         (PREDNISONE)  /00044701/) [Concomitant]
  4. CAPTOPRIL [Concomitant]
  5. MONOCORDIL              (ISOSORBIDE MONONITRATE) [Concomitant]
  6. AMITRIPTYLINE HCL [Concomitant]
  7. LORATADINE [Concomitant]
  8. MELOXICAM [Concomitant]
  9. FAMOTIDINE [Concomitant]

REACTIONS (1)
  - THROMBOSIS [None]
